FAERS Safety Report 16923897 (Version 1)
Quarter: 2019Q4

REPORT INFORMATION
  Report Type: Spontaneous
  Country: EC (occurrence: EC)
  Receive Date: 20191016
  Receipt Date: 20191016
  Transmission Date: 20200122
  Serious: Yes (Life-Threatening, Hospitalization, Other)
  Sender: FDA-Public Use
  Company Number: EC-ACCORD-157674

PATIENT
  Age: 15 Year
  Sex: Male

DRUGS (4)
  1. CALCIUM [Concomitant]
     Active Substance: CALCIUM
  2. FOLIC ACID. [Concomitant]
     Active Substance: FOLIC ACID
  3. CALCITRIOL. [Concomitant]
     Active Substance: CALCITRIOL
  4. ALLOPURINOL. [Suspect]
     Active Substance: ALLOPURINOL
     Indication: HYPERURICAEMIA
     Dosage: PATIENT RECEIVED A STARTING DOSE THAT WAS WITHIN THE RECOMMENDED STANDARD RANGES

REACTIONS (3)
  - Splenomegaly [Unknown]
  - Drug reaction with eosinophilia and systemic symptoms [Recovered/Resolved]
  - Liver function test increased [Unknown]
